FAERS Safety Report 9158039 (Version 1)
Quarter: 2013Q1

REPORT INFORMATION
  Report Type: Spontaneous
  Country: US (occurrence: US)
  Receive Date: 20130312
  Receipt Date: 20130312
  Transmission Date: 20140127
  Serious: Yes (Life-Threatening, Hospitalization)
  Sender: FDA-Public Use
  Company Number: US-AMGEN-US096758

PATIENT
  Age: 54 Year
  Sex: Female

DRUGS (4)
  1. ENBREL [Suspect]
     Indication: PSORIASIS
     Dosage: 25 MG, 2 TIMES/WK
     Route: 058
     Dates: start: 20040101, end: 20040606
  2. ENBREL [Suspect]
     Indication: PSORIATIC ARTHROPATHY
  3. PAROXETINE HYDROCHLORIDE [Concomitant]
     Dosage: 30 MG, QD
  4. DIPHENHYDRAMINE HYDROCHLORIDE [Concomitant]
     Dosage: UNK

REACTIONS (5)
  - Delirium [Recovered/Resolved]
  - Hyponatraemia [Unknown]
  - Staphylococcal bacteraemia [Recovered/Resolved with Sequelae]
  - Arthritis bacterial [Unknown]
  - Back pain [Recovered/Resolved]
